FAERS Safety Report 25300099 (Version 2)
Quarter: 2025Q2

REPORT INFORMATION
  Report Type: Report from Study
  Country: BR (occurrence: BR)
  Receive Date: 20250512
  Receipt Date: 20250613
  Transmission Date: 20250716
  Serious: Yes (Other)
  Sender: ROCHE
  Company Number: BR-ROCHE-10000276512

PATIENT

DRUGS (4)
  1. AVASTIN [Suspect]
     Active Substance: BEVACIZUMAB
     Indication: Eye disorder
     Route: 050
  2. LUCENTIS [Suspect]
     Active Substance: RANIBIZUMAB
     Indication: Eye disorder
     Route: 050
  3. AFLIBERCEPT [Suspect]
     Active Substance: AFLIBERCEPT
     Indication: Eye disorder
     Route: 050
  4. BROLUCIZUMAB [Suspect]
     Active Substance: BROLUCIZUMAB
     Indication: Eye disorder
     Route: 050

REACTIONS (3)
  - Off label use [Unknown]
  - Retinal detachment [Unknown]
  - Off label use [Unknown]
